FAERS Safety Report 26113364 (Version 4)
Quarter: 2025Q4

REPORT INFORMATION
  Report Type: Spontaneous
  Country: GB (occurrence: GB)
  Receive Date: 20251202
  Receipt Date: 20251215
  Transmission Date: 20260117
  Serious: Yes (Other)
  Sender: MYLAN
  Company Number: GB-MYLANLABS-2025M1091449

PATIENT
  Age: 34 Year
  Sex: Female
  Weight: 94.3 kg

DRUGS (5)
  1. CLOZARIL [Suspect]
     Active Substance: CLOZAPINE
     Indication: Psychotic disorder
     Dosage: BID (275 MG DAILY IN 2 DIVIDED DOSES OF 100MG OM AND 175MG NOCTE)
     Route: 061
     Dates: start: 20251028, end: 20251127
  2. CLOZARIL [Suspect]
     Active Substance: CLOZAPINE
     Indication: Schizophrenia
  3. LITHIUM [Concomitant]
     Active Substance: LITHIUM
     Indication: Mood swings
     Dosage: 600 MILLIGRAM, PM (NOCTE)
     Route: 061
     Dates: start: 20250923
  4. VENLAFAXINE [Concomitant]
     Active Substance: VENLAFAXINE HYDROCHLORIDE
     Indication: Depression
     Dosage: 375 MILLIGRAM, QD (OD)
     Route: 061
     Dates: start: 20250826
  5. MIRTAZAPINE [Concomitant]
     Active Substance: MIRTAZAPINE
     Indication: Depression
     Dosage: 150 MILLIGRAM, PM (NOCTE)
     Route: 061
     Dates: start: 20251022

REACTIONS (3)
  - Eosinophilia [Recovered/Resolved]
  - Salivary hypersecretion [Recovered/Resolved]
  - Off label use [Unknown]

NARRATIVE: CASE EVENT DATE: 20250101
